FAERS Safety Report 6414850-3 (Version None)
Quarter: 2009Q4

REPORT INFORMATION
  Report Type: 
  Country: None (occurrence: None)
  Receive Date: 20091026
  Receipt Date: 20081201
  Transmission Date: 20100525
  Serious: No
  Sender: FDA-Public Use
  Company Number: US-ABBOTT-08P-163-0490624-00

PATIENT
  Sex: Female
  Weight: 97.61 kg

DRUGS (5)
  1. LUPRON DEPOT [Suspect]
     Indication: ENDOMETRIOSIS
     Route: 030
     Dates: start: 20081001, end: 20081201
  2. LUPRON DEPOT [Suspect]
  3. UNKNOWN SEIZURE MEDICATION [Concomitant]
     Indication: CONVULSION
  4. ALLEGRA [Concomitant]
     Indication: DRUG USE FOR UNKNOWN INDICATION
  5. TOPAMAX [Concomitant]
     Indication: MIGRAINE

REACTIONS (1)
  - ALOPECIA [None]
